FAERS Safety Report 9804858 (Version 5)
Quarter: 2015Q2

REPORT INFORMATION
  Report Type: Report from Study
  Country: DK (occurrence: DK)
  Receive Date: 20140108
  Receipt Date: 20150407
  Transmission Date: 20150821
  Serious: Yes (Life-Threatening)
  Sender: FDA-Public Use
  Company Number: DK-AMGEN-DNKCT2013091838

PATIENT
  Age: 58 Year
  Sex: Female
  Weight: 55 kg

DRUGS (4)
  1. METHOTREXAT 2CARE4^                           /00113802/ [Concomitant]
     Indication: RHEUMATOID ARTHRITIS
     Dosage: STRENGHT: 2.5 MG DOSE: 15-17.5 MG/WEEK
     Route: 048
     Dates: start: 19980426, end: 201307
  2. ERCOQUIN [Concomitant]
     Dosage: 250 MG, DAILY
     Route: 048
     Dates: start: 20120821
  3. PREDNISOLON                        /00016201/ [Concomitant]
     Active Substance: PREDNISOLONE
     Dosage: STILL BEING GIVEN. DOSE: 2.5-5MG
     Route: 065
     Dates: start: 20030426
  4. ETANERCEPT [Suspect]
     Active Substance: ETANERCEPT
     Indication: RHEUMATOID ARTHRITIS
     Dosage: UNK
     Route: 058
     Dates: start: 20080922, end: 20081221

REACTIONS (1)
  - Central nervous system lymphoma [Not Recovered/Not Resolved]

NARRATIVE: CASE EVENT DATE: 20130616
